FAERS Safety Report 9690776 (Version 2)
Quarter: 2014Q1

REPORT INFORMATION
  Report Type: Spontaneous
  Country: US (occurrence: US)
  Receive Date: 20131115
  Receipt Date: 20140310
  Transmission Date: 20141002
  Serious: Yes (Death)
  Sender: FDA-Public Use
  Company Number: US-PFIZER INC-2013325247

PATIENT
  Age: 66 Year
  Sex: Male

DRUGS (13)
  1. INLYTA [Suspect]
     Indication: RENAL CANCER METASTATIC
     Dosage: 5 MG, 2X/DAY
     Route: 048
     Dates: start: 201311
  2. ALPRAZOLAM [Concomitant]
  3. LOMOTIL [Concomitant]
     Dosage: UNK
  4. MEGESTROL ACETATE [Concomitant]
  5. MAGNESIUM [Concomitant]
  6. LATANOPROST [Concomitant]
  7. METFORMIN HYDROCHLORIDE [Concomitant]
  8. LISINOPRIL [Concomitant]
  9. ATORVASTATIN CALCIUM [Concomitant]
  10. LEVOTHYROXINE SODIUM [Concomitant]
  11. AMLODIPINE BESYLATE [Concomitant]
  12. LORAZEPAM [Concomitant]
  13. OXYCODONE HYDROCHLORIDE [Concomitant]
     Dosage: UNK

REACTIONS (2)
  - Disease progression [Fatal]
  - Renal cancer metastatic [Fatal]
